FAERS Safety Report 25503126 (Version 1)
Quarter: 2025Q3

REPORT INFORMATION
  Report Type: Spontaneous
  Country: US (occurrence: US)
  Receive Date: 20250702
  Receipt Date: 20250702
  Transmission Date: 20251021
  Serious: No
  Sender: CHIESI
  Company Number: US-CHIESI-2025CHF02592

PATIENT
  Age: 64 Year
  Sex: Female
  Weight: 44.901 kg

DRUGS (1)
  1. FILSUVEZ [Suspect]
     Active Substance: BIRCH TRITERPENES
     Indication: Epidermolysis bullosa
     Route: 061
     Dates: start: 20250403

REACTIONS (2)
  - Wound complication [Not Recovered/Not Resolved]
  - Application site pruritus [Recovering/Resolving]

NARRATIVE: CASE EVENT DATE: 20250401
